FAERS Safety Report 15343170 (Version 3)
Quarter: 2018Q3

REPORT INFORMATION
  Report Type: Spontaneous
  Country: RO (occurrence: RO)
  Receive Date: 20180903
  Receipt Date: 20180925
  Transmission Date: 20181010
  Serious: Yes (Disabling)
  Sender: FDA-Public Use
  Company Number: RO-ROCHE-2178535

PATIENT
  Age: 50 Year
  Sex: Male
  Weight: 70 kg

DRUGS (8)
  1. VINCRISTINE [Concomitant]
     Active Substance: VINCRISTINE
     Indication: LYMPHOCYTIC LYMPHOMA
  2. INSULIN [Suspect]
     Active Substance: INSULIN NOS
     Indication: DIABETES MELLITUS
     Dosage: 10?12 IU/ML
     Route: 058
     Dates: start: 201804, end: 201806
  3. PREDNISOLONE. [Concomitant]
     Active Substance: PREDNISOLONE
     Indication: LYMPHOCYTIC LYMPHOMA
  4. FLUDARABINA [Concomitant]
     Active Substance: FLUDARABINE PHOSPHATE
     Indication: LYMPHOCYTIC LYMPHOMA
     Dosage: 25 MG/ML
     Route: 042
     Dates: start: 201806
  5. CICLOFOSFAMIDA [Concomitant]
     Active Substance: CYCLOPHOSPHAMIDE
     Route: 065
  6. CYCLOPHOSPHAMIDE. [Concomitant]
     Active Substance: CYCLOPHOSPHAMIDE
     Indication: LYMPHOCYTIC LYMPHOMA
  7. DOXORUBICIN [Concomitant]
     Active Substance: DOXORUBICIN
     Indication: LYMPHOCYTIC LYMPHOMA
  8. MABTHERA [Suspect]
     Active Substance: RITUXIMAB
     Indication: LYMPHOCYTIC LYMPHOMA
     Route: 042
     Dates: start: 201804, end: 201807

REACTIONS (5)
  - Axonal neuropathy [Not Recovered/Not Resolved]
  - Off label use [Unknown]
  - Hyperglycaemia [Recovered/Resolved]
  - Hypoglycaemia [Unknown]
  - Intentional product use issue [Unknown]

NARRATIVE: CASE EVENT DATE: 201804
